FAERS Safety Report 5352900-6 (Version None)
Quarter: 2007Q2

REPORT INFORMATION
  Report Type: 
  Country: None (occurrence: None)
  Receive Date: 20070611
  Receipt Date: 20070605
  Transmission Date: 20071010
  Serious: Yes (Hospitalization)
  Sender: FDA-Public Use
  Company Number: CZ-PFIZER INC-2007031514

PATIENT
  Sex: Female

DRUGS (2)
  1. ZOLOFT [Suspect]
  2. NEUROL COMP. [Concomitant]

REACTIONS (1)
  - OVERDOSE [None]
